FAERS Safety Report 16368048 (Version 1)
Quarter: 2019Q2

REPORT INFORMATION
  Report Type: Spontaneous
  Country: DE (occurrence: DE)
  Receive Date: 20190529
  Receipt Date: 20190529
  Transmission Date: 20190711
  Serious: Yes (Other)
  Sender: FDA-Public Use
  Company Number: DE-MYLANLABS-2019M1050418

PATIENT
  Sex: Female
  Weight: 56 kg

DRUGS (2)
  1. ISOPTIN RR 240 MG TABLETE S PRODULJENIM OSLOBA?ANJEM [Suspect]
     Active Substance: VERAPAMIL HYDROCHLORIDE
     Indication: PRODUCT USED FOR UNKNOWN INDICATION
     Dosage: 1 DOSAGE FORM, QD
     Route: 065
     Dates: start: 20190509
  2. L-THYROXIN HENNING [Concomitant]
     Active Substance: LEVOTHYROXINE SODIUM
     Indication: PRODUCT USED FOR UNKNOWN INDICATION
     Dosage: 1 DOSAGE FORM, QD
     Route: 065

REACTIONS (3)
  - Angina pectoris [Unknown]
  - Hypersensitivity [Unknown]
  - Constipation [Unknown]

NARRATIVE: CASE EVENT DATE: 201905
